FAERS Safety Report 5460483-5 (Version None)
Quarter: 2007Q3

REPORT INFORMATION
  Report Type: 
  Country: None (occurrence: None)
  Receive Date: 20070919
  Receipt Date: 20070716
  Transmission Date: 20080115
  Serious: No
  Sender: FDA-Public Use
  Company Number: US-ASTRAZENECA-2007UW16867

PATIENT
  Age: 623 Month
  Sex: Female

DRUGS (5)
  1. SEROQUEL [Suspect]
     Route: 048
  2. RISPERDAL [Concomitant]
     Indication: SLEEP DISORDER
     Dates: start: 20040101, end: 20041001
  3. RISPERDAL [Concomitant]
     Indication: DEPRESSION
     Dates: start: 20040101, end: 20041001
  4. ABILIFY [Concomitant]
  5. GEODON [Concomitant]

REACTIONS (4)
  - BLOOD CHOLESTEROL INCREASED [None]
  - DIABETES MELLITUS [None]
  - FEELING COLD [None]
  - PAIN IN EXTREMITY [None]
